FAERS Safety Report 10440529 (Version 3)
Quarter: 2014Q4

REPORT INFORMATION
  Report Type: Spontaneous
  Country: IE (occurrence: IE)
  Receive Date: 20140909
  Receipt Date: 20141023
  Transmission Date: 20150528
  Serious: No
  Sender: FDA-Public Use
  Company Number: IE-SHIRE-IE201405472

PATIENT
  Age: 16 Year
  Sex: Male
  Weight: 78 kg

DRUGS (5)
  1. SODIUM VALPROATE [Concomitant]
     Active Substance: VALPROATE SODIUM
     Indication: EPILEPSY
     Dosage: 400 MG, 2X/DAY:BID
     Route: 048
     Dates: start: 20120828
  2. SODIUM VALPROATE [Concomitant]
     Active Substance: VALPROATE SODIUM
     Dosage: 600 MG, 2X/DAY:BID
     Route: 065
     Dates: start: 2010
  3. RISPERIDONE. [Concomitant]
     Active Substance: RISPERIDONE
     Indication: AUTISM
     Dosage: 1.25 MG, UNKNOWN
     Route: 048
     Dates: start: 20120626
  4. RISPERIDONE. [Concomitant]
     Active Substance: RISPERIDONE
     Dosage: 1.75 MG, 1X/DAY:QD
     Route: 065
     Dates: start: 2012
  5. TYVENSE [Suspect]
     Active Substance: LISDEXAMFETAMINE DIMESYLATE
     Indication: ATTENTION DEFICIT/HYPERACTIVITY DISORDER
     Dosage: 30 MG, 1X/DAY:QD
     Route: 048
     Dates: start: 20140826, end: 20140826

REACTIONS (8)
  - Dyskinesia [Recovered/Resolved]
  - Tic [Recovered/Resolved]
  - Hypophagia [Unknown]
  - Frequent bowel movements [Unknown]
  - Tremor [Unknown]
  - Psychomotor hyperactivity [Unknown]
  - Abnormal behaviour [Unknown]
  - Muscle twitching [Unknown]

NARRATIVE: CASE EVENT DATE: 20140826
